FAERS Safety Report 13151312 (Version 1)
Quarter: 2017Q1

REPORT INFORMATION
  Report Type: Spontaneous
  Country: TH (occurrence: TH)
  Receive Date: 20170124
  Receipt Date: 20170124
  Transmission Date: 20170428
  Serious: Yes (Hospitalization)
  Sender: FDA-Public Use
  Company Number: TH-SCIEGEN PHARMACEUTICALS INC-2017SCILIT00006

PATIENT
  Age: 73 Year
  Sex: Male

DRUGS (5)
  1. GLYBURIDE. [Suspect]
     Active Substance: GLYBURIDE
     Indication: TYPE 2 DIABETES MELLITUS
     Dosage: 2.5 MG, UNK
     Route: 065
  2. CHINESE HERBAL MEDICINE [Suspect]
     Active Substance: HERBALS
     Indication: TYPE 2 DIABETES MELLITUS
     Dosage: UNK
     Route: 065
  3. METFORMIN HYDROCHLORIDE TABLETS, USP [Suspect]
     Active Substance: METFORMIN HYDROCHLORIDE
     Dosage: 500 MG, UNK PER 10 PILLS
     Route: 048
  4. SITAGLIPTIN [Suspect]
     Active Substance: SITAGLIPTIN
     Indication: TYPE 2 DIABETES MELLITUS
     Dosage: 50 MG, QD
     Route: 048
  5. METFORMIN HYDROCHLORIDE TABLETS, USP [Suspect]
     Active Substance: METFORMIN HYDROCHLORIDE
     Indication: TYPE 2 DIABETES MELLITUS
     Dosage: 1000 MG, QD
     Route: 048

REACTIONS (2)
  - Hyperinsulinaemic hypoglycaemia [Unknown]
  - Fatigue [Unknown]
